FAERS Safety Report 6821723-0 (Version None)
Quarter: 2010Q3

REPORT INFORMATION
  Report Type: 
  Country: None (occurrence: None)
  Receive Date: 20100702
  Receipt Date: 20100621
  Transmission Date: 20110219
  Serious: Yes (Death)
  Sender: FDA-Public Use
  Company Number: A-US2010-36961

PATIENT
  Age: 62 Year
  Sex: Male

DRUGS (2)
  1. TRACLEER [Suspect]
     Indication: PULMONARY ARTERIAL HYPERTENSION
     Dates: end: 20100314
  2. VIAGRA [Concomitant]

REACTIONS (1)
  - SUDDEN DEATH [None]
